FAERS Safety Report 9117219 (Version 2)
Quarter: 2013Q2

REPORT INFORMATION
  Report Type: Report from Study
  Country: BR (occurrence: BR)
  Receive Date: 20130128
  Receipt Date: 20130524
  Transmission Date: 20140414
  Serious: Yes (Other)
  Sender: FDA-Public Use
  Company Number: BR-ROCHE-1184126

PATIENT
  Sex: Female
  Weight: 60 kg

DRUGS (10)
  1. MABTHERA [Suspect]
     Indication: RHEUMATOID ARTHRITIS
     Route: 042
     Dates: start: 200907
  2. MABTHERA [Suspect]
     Route: 042
     Dates: start: 201008
  3. MABTHERA [Suspect]
     Route: 042
     Dates: start: 201108
  4. MABTHERA [Suspect]
     Route: 042
     Dates: start: 201208
  5. PURAN T4 [Concomitant]
     Route: 065
  6. SEROQUEL [Concomitant]
  7. PROPRANOLOL HYDROCHLORIDE [Concomitant]
  8. VITAMIN B3 [Concomitant]
  9. OMEPRAZOLE [Concomitant]
  10. SERTRALINE [Concomitant]

REACTIONS (5)
  - Tooth disorder [Unknown]
  - Temporomandibular joint syndrome [Unknown]
  - Ear pain [Unknown]
  - Migraine [Unknown]
  - Arthralgia [Not Recovered/Not Resolved]
